FAERS Safety Report 21386113 (Version 1)
Quarter: 2022Q3

REPORT INFORMATION
  Report Type: Spontaneous
  Country: NL (occurrence: NL)
  Receive Date: 20220928
  Receipt Date: 20220928
  Transmission Date: 20221026
  Serious: Yes (Hospitalization)
  Sender: FDA-Public Use
  Company Number: None

PATIENT
  Sex: Female
  Weight: 96 kg

DRUGS (4)
  1. AZITHROMYCIN [Suspect]
     Active Substance: AZITHROMYCIN
     Indication: Oropharyngeal pain
     Dosage: UNK (2 X PER DAG 1)
     Route: 065
     Dates: start: 20220820, end: 20220827
  2. FLUCONAZOLE [Suspect]
     Active Substance: FLUCONAZOLE
     Indication: Fungal infection
     Dosage: 100 MG, QD (1 X PER DAG 2)
     Route: 065
     Dates: start: 20220822
  3. CLOZAPINE [Suspect]
     Active Substance: CLOZAPINE
     Indication: Psychotic disorder
     Dosage: 1X PER DAG 1,5 STUK MELTING TABLET
     Route: 065
     Dates: start: 20080101, end: 20220831
  4. METAMIZOLE [Suspect]
     Active Substance: METAMIZOLE
     Indication: Pain
     Dosage: 1000 MG, Q6H (4X PER DAG 2)
     Route: 065
     Dates: start: 20220617, end: 20220831

REACTIONS (1)
  - Agranulocytosis [Recovered/Resolved]
